FAERS Safety Report 10997937 (Version 2)
Quarter: 2015Q2

REPORT INFORMATION
  Report Type: Spontaneous
  Country: US (occurrence: US)
  Receive Date: 20150408
  Receipt Date: 20150429
  Transmission Date: 20150821
  Serious: Yes (Life-Threatening, Congenital Anomaly, Other)
  Sender: FDA-Public Use
  Company Number: US-ELI_LILLY_AND_COMPANY-US201503010404

PATIENT

DRUGS (5)
  1. PROZAC [Suspect]
     Active Substance: FLUOXETINE HYDROCHLORIDE
     Indication: MAJOR DEPRESSION
     Dosage: 20MG,DAILY
     Route: 048
     Dates: start: 20090923
  2. OMEPRAZOLE. [Concomitant]
     Active Substance: OMEPRAZOLE
     Dosage: 20MG, DAILY
     Route: 048
  3. AZITHROMYCIN [Concomitant]
     Active Substance: AZITHROMYCIN ANHYDROUS
     Dosage: 250MG, QD X 6 TABLETS
     Route: 048
  4. CM PROMETHAZINE [Concomitant]
     Dosage: 25MG, QID
     Route: 048
  5. ONDANSETRON [Concomitant]
     Active Substance: ONDANSETRON
     Dosage: 8MG, (.5 OR 1TAB BID)
     Route: 048

REACTIONS (6)
  - Meconium stain [Unknown]
  - Neonatal respiratory distress syndrome [Recovered/Resolved]
  - Talipes [Unknown]
  - Anaemia neonatal [Recovering/Resolving]
  - Premature baby [Unknown]
  - Foetal exposure during pregnancy [Recovered/Resolved]
